FAERS Safety Report 8572179-1 (Version None)
Quarter: 2012Q3

REPORT INFORMATION
  Report Type: 
  Country: None (occurrence: None)
  Receive Date: 20120806
  Receipt Date: 20120802
  Transmission Date: 20120928
  Serious: Yes (Life-Threatening, Hospitalization)
  Sender: FDA-Public Use
  Company Number: US-US-EMD SERONO, INC.-7152013

PATIENT
  Sex: Female

DRUGS (3)
  1. NEURONTIN [Concomitant]
     Indication: PAIN
  2. REBIF [Suspect]
     Route: 058
     Dates: start: 20120724
  3. REBIF [Suspect]
     Indication: MULTIPLE SCLEROSIS
     Dates: end: 20100101

REACTIONS (6)
  - CARDIAC ARREST [None]
  - INFLUENZA LIKE ILLNESS [None]
  - OVERDOSE [None]
  - PSYCHOTIC DISORDER [None]
  - DEPRESSION [None]
  - NAUSEA [None]
